FAERS Safety Report 19001856 (Version 1)
Quarter: 2021Q1

REPORT INFORMATION
  Report Type: Spontaneous
  Country: US (occurrence: US)
  Receive Date: 20210312
  Receipt Date: 20210312
  Transmission Date: 20210420
  Serious: Yes (Other)
  Sender: FDA-Public Use
  Company Number: None

PATIENT
  Age: 38 Year
  Sex: Female
  Weight: 67.59 kg

DRUGS (1)
  1. AJOVY [Suspect]
     Active Substance: FREMANEZUMAB-VFRM

REACTIONS (6)
  - Injection site discolouration [None]
  - Constipation [None]
  - Anger [None]
  - Injection site pruritus [None]
  - Injection site mass [None]
  - Loss of libido [None]

NARRATIVE: CASE EVENT DATE: 20210304
